FAERS Safety Report 17734806 (Version 4)
Quarter: 2025Q2

REPORT INFORMATION
  Report Type: Report from Study
  Country: US (occurrence: US)
  Receive Date: 20200501
  Receipt Date: 20250529
  Transmission Date: 20250716
  Serious: Yes (Hospitalization, Other)
  Sender: TAKEDA
  Company Number: US-SHIRE-US202012069

PATIENT
  Sex: Female
  Weight: 65 kg

DRUGS (33)
  1. HUMAN IMMUNOGLOBULIN G [Suspect]
     Active Substance: HUMAN IMMUNOGLOBULIN G
     Indication: Immunodeficiency common variable
     Dosage: 12 GRAM, 1/WEEK
     Dates: start: 20060916
  2. HUMAN IMMUNOGLOBULIN G [Suspect]
     Active Substance: HUMAN IMMUNOGLOBULIN G
     Dosage: 12 GRAM, 1/WEEK
     Dates: start: 20160303
  3. HUMAN IMMUNOGLOBULIN G [Suspect]
     Active Substance: HUMAN IMMUNOGLOBULIN G
     Dosage: 12 GRAM, 1/WEEK
     Dates: start: 20160331
  4. ACETAMINOPHEN [Concomitant]
     Active Substance: ACETAMINOPHEN
  5. BUPROPION [Concomitant]
     Active Substance: BUPROPION
  6. BUPROPION HYDROCHLORIDE XL [Concomitant]
     Active Substance: BUPROPION HYDROCHLORIDE
  7. DUREZOL [Concomitant]
     Active Substance: DIFLUPREDNATE
  8. NABUMETONE [Concomitant]
     Active Substance: NABUMETONE
  9. Aller Flo [Concomitant]
  10. KEFLEX [Concomitant]
     Active Substance: CEPHALEXIN
  11. TIZANIDINE HYDROCHLORIDE [Concomitant]
     Active Substance: TIZANIDINE HYDROCHLORIDE
  12. LOSARTAN POTASSIUM [Concomitant]
     Active Substance: LOSARTAN POTASSIUM
  13. Omega [Concomitant]
  14. FISH OIL [Concomitant]
     Active Substance: FISH OIL
  15. ASPIRIN [Concomitant]
     Active Substance: ASPIRIN
  16. LIDOCAINE [Concomitant]
     Active Substance: LIDOCAINE
  17. VITAMIN C [Concomitant]
     Active Substance: ASCORBIC ACID
  18. QVAR [Concomitant]
     Active Substance: BECLOMETHASONE DIPROPIONATE
  19. PROLENSA [Concomitant]
     Active Substance: BROMFENAC SODIUM
  20. AUGMENTIN [Concomitant]
     Active Substance: AMOXICILLIN\CLAVULANATE POTASSIUM
  21. GATIFLOXACIN [Concomitant]
     Active Substance: GATIFLOXACIN
  22. SIMVASTATIN [Concomitant]
     Active Substance: SIMVASTATIN
  23. OXYBUTYNIN [Concomitant]
     Active Substance: OXYBUTYNIN
  24. DIPHENHYDRAMINE HYDROCHLORIDE [Concomitant]
     Active Substance: DIPHENHYDRAMINE HYDROCHLORIDE
  25. VESICARE [Concomitant]
     Active Substance: SOLIFENACIN SUCCINATE
  26. AMLODIPINE BESYLATE [Concomitant]
     Active Substance: AMLODIPINE BESYLATE
  27. ALEVE [Concomitant]
     Active Substance: NAPROXEN SODIUM
  28. HYDROCHLOROTHIAZIDE [Concomitant]
     Active Substance: HYDROCHLOROTHIAZIDE
  29. HYDROCHLOROTHIAZIDE [Concomitant]
     Active Substance: HYDROCHLOROTHIAZIDE
  30. DIPHENHYDRAMINE [Concomitant]
     Active Substance: DIPHENHYDRAMINE
  31. EPINEPHRINE [Concomitant]
     Active Substance: EPINEPHRINE
  32. FLUTICASONE [Concomitant]
     Active Substance: FLUTICASONE
  33. LOSARTAN [Concomitant]
     Active Substance: LOSARTAN

REACTIONS (21)
  - Accident [Unknown]
  - Cerebral haemorrhage [Unknown]
  - Head injury [Unknown]
  - Nasal injury [Unknown]
  - Sinus disorder [Unknown]
  - Productive cough [Unknown]
  - Sinus headache [Unknown]
  - Furuncle [Unknown]
  - General physical health deterioration [Unknown]
  - Weight decreased [Unknown]
  - Paranasal sinus hypersecretion [Unknown]
  - Device infusion issue [Unknown]
  - Product use issue [Unknown]
  - Product dose omission issue [Unknown]
  - Inappropriate schedule of product administration [Unknown]
  - Fall [Unknown]
  - Illness [Unknown]
  - Cough [Unknown]
  - Infusion site swelling [Recovered/Resolved]
  - Headache [Unknown]
  - Malaise [Unknown]
